FAERS Safety Report 22299000 (Version 2)
Quarter: 2023Q4

REPORT INFORMATION
  Report Type: Report from Study
  Country: AR (occurrence: AR)
  Receive Date: 20230509
  Receipt Date: 20231019
  Transmission Date: 20240109
  Serious: Yes (Other)
  Sender: FDA-Public Use
  Company Number: AR-ABBVIE-4758867

PATIENT
  Sex: Male

DRUGS (1)
  1. HUMIRA [Suspect]
     Active Substance: ADALIMUMAB
     Indication: Psoriasis
     Dosage: FORM STRENGTH 40 MILLIGRAMS
     Route: 058
     Dates: start: 20191112

REACTIONS (4)
  - Hernia [Recovering/Resolving]
  - Gallbladder disorder [Recovered/Resolved]
  - Psoriasis [Not Recovered/Not Resolved]
  - Inguinal hernia [Recovering/Resolving]
